FAERS Safety Report 7325071 (Version 4)
Quarter: 2012Q4

REPORT INFORMATION
  Report Type: 
  Country: DE (occurrence: DE)
  Receive Date: 20100319
  Receipt Date: 20120831
  Transmission Date: 20130627
  Serious: Yes (Death, Life-Threatening, Hospitalization, Other)
  Sender: FDA-Public Use
  Company Number: DE-RANBAXY-2010RR-32477

PATIENT
  Age: 79 Year
  Sex: Female
  Weight: 81 kg

DRUGS (7)
  1. IBUPROFEN [Suspect]
     Indication: PAIN
     Dosage: 400 mg, tid
     Route: 048
     Dates: start: 20091007, end: 20091021
  2. IBUPROFEN [Suspect]
     Dosage: 400 mg, bid
     Route: 048
     Dates: start: 20091022, end: 20091029
  3. ENALAPRIL [Interacting]
     Indication: HYPERTENSION
     Dosage: 20 mg, qd
     Route: 048
     Dates: start: 2003, end: 20091029
  4. HCT 25 - 1 A PHARMA [Concomitant]
     Indication: HYPERTENSION
     Dosage: 12.5 mg, qd
     Route: 048
     Dates: start: 2000, end: 20091029
  5. AMIODARON 200-1 A PHARMA [Concomitant]
     Indication: TACHYARRHYTHMIA
     Dosage: 200 mg, qd
     Route: 048
     Dates: start: 200811, end: 20091029
  6. ASS 100 - 1 A PHARMA [Concomitant]
     Indication: CORONARY ARTERY DISEASE
     Dosage: 100 mg, qd
     Route: 048
     Dates: start: 2003, end: 20091029
  7. BISOPROLOL 5 - 1 A PHARMA [Concomitant]
     Indication: CORONARY ARTERY DISEASE
     Dosage: 5 mg, qd
     Route: 048
     Dates: start: 2003, end: 20091029

REACTIONS (9)
  - Renal failure acute [Recovering/Resolving]
  - Drug interaction [Recovering/Resolving]
  - Cardiac arrest [None]
  - Septic shock [None]
  - Metabolic acidosis [None]
  - Cholestasis [None]
  - Ileus paralytic [None]
  - Myocardial infarction [None]
  - Haemodialysis [None]
